FAERS Safety Report 10612978 (Version 2)
Quarter: 2015Q1

REPORT INFORMATION
  Report Type: Spontaneous
  Country: DE (occurrence: DE)
  Receive Date: 20141127
  Receipt Date: 20150124
  Transmission Date: 20150720
  Serious: Yes (Death, Other)
  Sender: FDA-Public Use
  Company Number: DE-AMGEN-DEUSP2014091202

PATIENT
  Age: 73 Year
  Sex: Male
  Weight: 80 kg

DRUGS (2)
  1. ZYTIGA [Concomitant]
     Active Substance: ABIRATERONE ACETATE
     Dosage: UNK
     Route: 048
  2. XGEVA [Suspect]
     Active Substance: DENOSUMAB
     Indication: PROSTATE CANCER
     Dosage: UNK UNK, QMO
     Route: 058
     Dates: start: 201310, end: 201406

REACTIONS (7)
  - Water intoxication [Fatal]
  - Fluid overload [Unknown]
  - Prostate cancer [Unknown]
  - Ascites [Fatal]
  - Hyponatraemia [Fatal]
  - Hypernatraemia [Unknown]
  - Nausea [Unknown]

NARRATIVE: CASE EVENT DATE: 201403
